FAERS Safety Report 17028264 (Version 2)
Quarter: 2019Q4

REPORT INFORMATION
  Report Type: Report from Study
  Country: US (occurrence: US)
  Receive Date: 20191113
  Receipt Date: 20191226
  Transmission Date: 20200122
  Serious: Yes (Other)
  Sender: FDA-Public Use
  Company Number: US-ACTELION-A-NJ2019-197999

PATIENT
  Age: 58 Year
  Sex: Female
  Weight: 76.64 kg

DRUGS (16)
  1. ALPRAZOLAM. [Concomitant]
     Active Substance: ALPRAZOLAM
  2. OPSUMIT [Suspect]
     Active Substance: MACITENTAN
     Indication: PULMONARY ARTERIAL HYPERTENSION
     Dosage: 10 MG, QD
     Route: 048
     Dates: start: 20180615
  3. LORAZEPAM. [Concomitant]
     Active Substance: LORAZEPAM
  4. LUMIGAN [Concomitant]
     Active Substance: BIMATOPROST
  5. PROAIR HFA [Concomitant]
     Active Substance: ALBUTEROL SULFATE
  6. ACTIGALL [Concomitant]
     Active Substance: URSODIOL
  7. RESTASIS [Concomitant]
     Active Substance: CYCLOSPORINE
  8. DIGOXIN. [Concomitant]
     Active Substance: DIGOXIN
  9. SINGULAIR [Concomitant]
     Active Substance: MONTELUKAST SODIUM
  10. FUROSEMIDE. [Concomitant]
     Active Substance: FUROSEMIDE
  11. VALSARTAN. [Concomitant]
     Active Substance: VALSARTAN
  12. SILDENAFIL. [Concomitant]
     Active Substance: SILDENAFIL
  13. METFORMIN [Concomitant]
     Active Substance: METFORMIN HYDROCHLORIDE
  14. OMEPRAZOLE. [Concomitant]
     Active Substance: OMEPRAZOLE
  15. SPIRONOLACTONE. [Concomitant]
     Active Substance: SPIRONOLACTONE
  16. VITAMIN D [Concomitant]
     Active Substance: VITAMIN D NOS

REACTIONS (3)
  - Influenza [Unknown]
  - Eye operation [Unknown]
  - Blindness transient [Unknown]

NARRATIVE: CASE EVENT DATE: 20191031
